FAERS Safety Report 16758897 (Version 1)
Quarter: 2019Q3

REPORT INFORMATION
  Report Type: Spontaneous
  Country: CA (occurrence: CA)
  Receive Date: 20190830
  Receipt Date: 20190830
  Transmission Date: 20191005
  Serious: Yes (Other)
  Sender: FDA-Public Use
  Company Number: CA-CELLTRION INC.-2017CA015526

PATIENT

DRUGS (16)
  1. INFLECTRA [Suspect]
     Active Substance: INFLIXIMAB-DYYB
     Dosage: 300 MG, AT 0, 2, 6, THEN EVERY 8 WEEKS
     Route: 042
     Dates: start: 20171017, end: 20180326
  2. INFLECTRA [Suspect]
     Active Substance: INFLIXIMAB-DYYB
     Dosage: 450 MG, EVERY 6 WEEKS
     Route: 042
     Dates: start: 20180509, end: 20190114
  3. PREMARIN [Concomitant]
     Active Substance: ESTROGENS, CONJUGATED
     Dosage: UNK
     Route: 065
  4. INFLECTRA [Suspect]
     Active Substance: INFLIXIMAB-DYYB
     Dosage: 450 MG, EVERY 6 WEEKS
     Route: 042
     Dates: start: 20190114
  5. APO-PANTOPRAZOLE [Concomitant]
     Active Substance: PANTOPRAZOLE SODIUM
     Dosage: UNK
     Route: 065
  6. IRON [Concomitant]
     Active Substance: IRON
     Dosage: UNK
     Route: 065
  7. CALCIUM [Concomitant]
     Active Substance: CALCIUM
     Dosage: UNK
     Route: 065
  8. INFLECTRA [Suspect]
     Active Substance: INFLIXIMAB-DYYB
     Indication: CROHN^S DISEASE
     Dosage: 300 MG, AT 0, 2, 6, THEN EVERY 8 WEEKS
     Route: 042
     Dates: start: 20171017, end: 20180131
  9. INFLECTRA [Suspect]
     Active Substance: INFLIXIMAB-DYYB
     Dosage: 450 MG, EVERY 8 WEEKS
     Route: 042
     Dates: start: 20180326, end: 20180326
  10. INFLECTRA [Suspect]
     Active Substance: INFLIXIMAB-DYYB
     Dosage: 450 MG, EVERY 6 WEEKS
     Route: 042
     Dates: start: 20180730, end: 20180730
  11. INFLECTRA [Suspect]
     Active Substance: INFLIXIMAB-DYYB
     Dosage: 450 MG, EVERY 6 WEEKS
     Route: 042
     Dates: start: 20181024
  12. COLESTID [Concomitant]
     Active Substance: COLESTIPOL HYDROCHLORIDE
     Dosage: UNK
     Route: 065
  13. ZOPLICONE [Concomitant]
     Active Substance: ZOPICLONE
     Dosage: UNK
     Route: 065
  14. INFLECTRA [Suspect]
     Active Substance: INFLIXIMAB-DYYB
     Dosage: 450 MG, EVERY 8 WEEKS
     Route: 042
     Dates: start: 20180131, end: 20180326
  15. INFLECTRA [Suspect]
     Active Substance: INFLIXIMAB-DYYB
     Dosage: 450 MG, EVERY 6 WEEKS
     Route: 042
     Dates: start: 20180910, end: 20180910
  16. INFLECTRA [Suspect]
     Active Substance: INFLIXIMAB-DYYB
     Dosage: 450 MG, EVERY 6 WEEKS
     Route: 042
     Dates: start: 20180509, end: 20180509

REACTIONS (12)
  - Dizziness [Recovered/Resolved]
  - Arthritis infective [Not Recovered/Not Resolved]
  - Hypotension [Recovered/Resolved]
  - Basal cell carcinoma [Unknown]
  - Abdominal discomfort [Unknown]
  - Nausea [Recovered/Resolved]
  - Fatigue [Unknown]
  - Off label use [Unknown]
  - Injection site erythema [Unknown]
  - Injection site warmth [Unknown]
  - Off label use [Unknown]
  - Injection site discharge [Unknown]

NARRATIVE: CASE EVENT DATE: 20171018
